FAERS Safety Report 8832491 (Version 1)
Quarter: 2012Q4

REPORT INFORMATION
  Report Type: 
  Country: US (occurrence: US)
  Receive Date: 20121010
  Receipt Date: 20121010
  Transmission Date: 20130627
  Serious: Yes (Hospitalization)
  Sender: FDA-Public Use
  Company Number: US-ELI_LILLY_AND_COMPANY-US201210002153

PATIENT
  Age: 62 Year
  Sex: Female

DRUGS (3)
  1. EFFIENT [Suspect]
     Dosage: 60 mg, single loading dose
     Route: 048
     Dates: end: 20121003
  2. EFFIENT [Suspect]
     Dosage: 10 mg, qd maintenance dose
     Route: 048
  3. PLAVIX [Concomitant]

REACTIONS (1)
  - Cerebrovascular accident [Unknown]
